FAERS Safety Report 8270378-X (Version None)
Quarter: 2012Q2

REPORT INFORMATION
  Report Type: 
  Country: None (occurrence: None)
  Receive Date: 20120410
  Receipt Date: 20120404
  Transmission Date: 20120825
  Serious: Yes (Other)
  Sender: FDA-Public Use
  Company Number: JP-SANOFI-AVENTIS-2012SA024449

PATIENT
  Sex: Male
  Weight: 74 kg

DRUGS (6)
  1. ALPHA-ADRENOCEPTOR BLOCKING AGENTS [Concomitant]
  2. LANTUS [Suspect]
     Indication: TYPE 2 DIABETES MELLITUS
     Route: 058
     Dates: start: 20101211
  3. CALCIUM CHANNEL BLOCKERS [Concomitant]
  4. INSULIN ASPART [Concomitant]
     Indication: TYPE 2 DIABETES MELLITUS
     Dosage: TID (AT BREAKFAST, LUNCH AND DINNER)
     Route: 058
     Dates: start: 20061020
  5. DIURETICS [Concomitant]
  6. ANGIOTENSIN II ANTAGONISTS [Concomitant]

REACTIONS (1)
  - CEREBROVASCULAR ACCIDENT [None]
